FAERS Safety Report 18280205 (Version 1)
Quarter: 2020Q3

REPORT INFORMATION
  Report Type: Spontaneous
  Country: BG (occurrence: BG)
  Receive Date: 20200917
  Receipt Date: 20200917
  Transmission Date: 20201103
  Serious: Yes (Hospitalization)
  Sender: FDA-Public Use
  Company Number: BG-ABBVIE-20K-022-3567088-00

PATIENT
  Sex: Female

DRUGS (1)
  1. HUMIRA [Suspect]
     Active Substance: ADALIMUMAB
     Indication: PRODUCT USED FOR UNKNOWN INDICATION
     Route: 058
     Dates: start: 2016

REACTIONS (10)
  - Dermatitis psoriasiform [Unknown]
  - Rash [Recovering/Resolving]
  - Joint effusion [Unknown]
  - Enthesopathy [Recovering/Resolving]
  - Spinal disorder [Recovering/Resolving]
  - Red blood cell sedimentation rate increased [Unknown]
  - C-reactive protein increased [Unknown]
  - Musculoskeletal stiffness [Recovering/Resolving]
  - Gout [Unknown]
  - Synovitis [Unknown]
